FAERS Safety Report 14247628 (Version 1)
Quarter: 2017Q4

REPORT INFORMATION
  Report Type: Spontaneous
  Country: RO (occurrence: RO)
  Receive Date: 20171204
  Receipt Date: 20171204
  Transmission Date: 20180321
  Serious: Yes (Other)
  Sender: FDA-Public Use
  Company Number: RO-JNJFOC-20171135544

PATIENT
  Age: 53 Year
  Sex: Male
  Weight: 85 kg

DRUGS (9)
  1. IBRUTINIB [Suspect]
     Active Substance: IBRUTINIB
     Indication: MANTLE CELL LYMPHOMA
     Route: 048
     Dates: start: 20170213, end: 20171016
  2. NEBILET [Concomitant]
     Active Substance: NEBIVOLOL
     Indication: HYPERTENSION
     Route: 048
     Dates: start: 20170313
  3. TERTENSIF [Concomitant]
     Active Substance: INDAPAMIDE
     Indication: MITRAL VALVE PROLAPSE
     Route: 048
     Dates: start: 20170313
  4. TENAXUM [Concomitant]
     Active Substance: RILMENIDINE
     Indication: MITRAL VALVE PROLAPSE
     Route: 048
     Dates: start: 20170313
  5. SEVIKAR [Concomitant]
     Active Substance: AMLODIPINE BESYLATE\OLMESARTAN MEDOXOMIL
     Indication: HYPERTENSION
     Route: 048
     Dates: start: 20170313
  6. NEBILET [Concomitant]
     Active Substance: NEBIVOLOL
     Indication: MITRAL VALVE PROLAPSE
     Route: 048
     Dates: start: 20170313
  7. TERTENSIF [Concomitant]
     Active Substance: INDAPAMIDE
     Indication: HYPERTENSION
     Route: 048
     Dates: start: 20170313
  8. TENAXUM [Concomitant]
     Active Substance: RILMENIDINE
     Indication: HYPERTENSION
     Route: 048
     Dates: start: 20170313
  9. SEVIKAR [Concomitant]
     Active Substance: AMLODIPINE BESYLATE\OLMESARTAN MEDOXOMIL
     Indication: MITRAL VALVE PROLAPSE
     Route: 048
     Dates: start: 20170313

REACTIONS (3)
  - Atrial fibrillation [Not Recovered/Not Resolved]
  - Aortic valve incompetence [Unknown]
  - Mitral valve incompetence [Unknown]

NARRATIVE: CASE EVENT DATE: 20170828
